FAERS Safety Report 7144260-5 (Version None)
Quarter: 2010Q4

REPORT INFORMATION
  Report Type: 
  Country: None (occurrence: None)
  Receive Date: 20101208
  Receipt Date: 20101122
  Transmission Date: 20110411
  Serious: Yes (Other)
  Sender: FDA-Public Use
  Company Number: US-BAYER-2010-000292

PATIENT
  Sex: Female
  Weight: 67 kg

DRUGS (2)
  1. BAYER EXTRA STRENGTH PLUS [Suspect]
     Indication: SLEEP DISORDER THERAPY
     Dosage: 2 DF, HS
     Route: 048
  2. CADUET [Concomitant]

REACTIONS (2)
  - BLOOD URINE PRESENT [None]
  - HAEMATOCHEZIA [None]
